FAERS Safety Report 24578440 (Version 1)
Quarter: 2024Q4

REPORT INFORMATION
  Report Type: Report from Study
  Country: JP (occurrence: JP)
  Receive Date: 20241105
  Receipt Date: 20241105
  Transmission Date: 20250114
  Serious: Yes (Hospitalization)
  Sender: TEVA
  Company Number: JP-TEVA-VS-3259568

PATIENT
  Age: 70 Year
  Sex: Female

DRUGS (2)
  1. PREDNISOLONE [Suspect]
     Active Substance: PREDNISOLONE
     Indication: Autoimmune hepatitis
     Route: 065
  2. RITUXIMAB [Suspect]
     Active Substance: RITUXIMAB
     Indication: Autoimmune hepatitis
     Route: 065

REACTIONS (1)
  - COVID-19 [Not Recovered/Not Resolved]
